FAERS Safety Report 7006625-1 (Version None)
Quarter: 2010Q3

REPORT INFORMATION
  Report Type: 
  Country: None (occurrence: None)
  Receive Date: 20100921
  Receipt Date: 20100921
  Transmission Date: 20110219
  Serious: Yes (Hospitalization)
  Sender: FDA-Public Use
  Company Number: None

PATIENT
  Age: 48 Year
  Sex: Female
  Weight: 80 kg

DRUGS (4)
  1. SOLIRIS [Suspect]
     Indication: PROPHYLAXIS AGAINST TRANSPLANT REJECTION
     Dosage: 600 MG 5 IV 2/18, 2/24-3/17/10 WEEKLY 1200 MG 13 IV 2/17, 2/25-9/8 ONCE EVERY 2 WKS
     Route: 042
     Dates: start: 20100224, end: 20100317
  2. SOLIRIS [Suspect]
     Indication: PROPHYLAXIS AGAINST TRANSPLANT REJECTION
     Dosage: 600 MG 5 IV 2/18, 2/24-3/17/10 WEEKLY 1200 MG 13 IV 2/17, 2/25-9/8 ONCE EVERY 2 WKS
     Route: 042
     Dates: start: 20100225, end: 20100908
  3. SOLIRIS [Suspect]
     Indication: PROPHYLAXIS AGAINST TRANSPLANT REJECTION
     Dosage: 600 MG 5 IV 2/18, 2/24-3/17/10 WEEKLY 1200 MG 13 IV 2/17, 2/25-9/8 ONCE EVERY 2 WKS
     Route: 042
     Dates: start: 20100217
  4. SOLIRIS [Suspect]
     Indication: PROPHYLAXIS AGAINST TRANSPLANT REJECTION
     Dosage: 600 MG 5 IV 2/18, 2/24-3/17/10 WEEKLY 1200 MG 13 IV 2/17, 2/25-9/8 ONCE EVERY 2 WKS
     Route: 042
     Dates: start: 20100218

REACTIONS (4)
  - LOWER RESPIRATORY TRACT INFECTION [None]
  - MIGRAINE [None]
  - PARATRACHEAL LYMPHADENOPATHY [None]
  - PROCEDURAL COMPLICATION [None]
